FAERS Safety Report 5975866-4 (Version None)
Quarter: 2008Q4

REPORT INFORMATION
  Report Type: 
  Country: None (occurrence: None)
  Receive Date: 20081202
  Receipt Date: 20081128
  Transmission Date: 20090506
  Serious: Yes (Death)
  Sender: FDA-Public Use
  Company Number: B0539152A

PATIENT
  Age: 65 Year
  Sex: Female

DRUGS (4)
  1. LAPATINIB [Suspect]
     Dosage: 750MG PER DAY
     Route: 048
     Dates: start: 20080711, end: 20080810
  2. EPIRUBICIN [Suspect]
     Dosage: 80MGM2 UNKNOWN
     Route: 042
     Dates: start: 20080801
  3. VINORELBINE [Suspect]
     Dosage: 20MGM2 UNKNOWN
     Route: 042
     Dates: start: 20080801, end: 20080805
  4. EUTIROX [Concomitant]
     Dosage: 50MG PER DAY

REACTIONS (17)
  - AMMONIA INCREASED [None]
  - COUGH [None]
  - DECREASED APPETITE [None]
  - DEPRESSED LEVEL OF CONSCIOUSNESS [None]
  - DIARRHOEA [None]
  - DYSPNOEA [None]
  - FEBRILE NEUTROPENIA [None]
  - GENERAL PHYSICAL HEALTH DETERIORATION [None]
  - HEPATOTOXICITY [None]
  - LEUKOPENIA [None]
  - METASTASIS [None]
  - NAUSEA [None]
  - NEUTROPENIA [None]
  - PERIPHERAL SENSORY NEUROPATHY [None]
  - PSEUDOMONAS INFECTION [None]
  - PYREXIA [None]
  - VOMITING [None]
